FAERS Safety Report 8047599-4 (Version None)
Quarter: 2012Q1

REPORT INFORMATION
  Report Type: 
  Country: None (occurrence: None)
  Receive Date: 20120116
  Receipt Date: 20120109
  Transmission Date: 20120608
  Serious: Yes (Death)
  Sender: FDA-Public Use
  Company Number: US-GLAXOSMITHKLINE-A0961402A

PATIENT
  Age: 57 Year
  Sex: Male
  Weight: 90.9 kg

DRUGS (2)
  1. PAROXETINE HYDROCHLORIDE [Suspect]
     Indication: ANXIETY
     Dosage: 10MG PER DAY
     Route: 048
     Dates: start: 20100710, end: 20100701
  2. LEVAQUIN [Concomitant]
     Dosage: 500MG IN THE MORNING
     Route: 048

REACTIONS (4)
  - SUICIDAL IDEATION [None]
  - COMPLETED SUICIDE [None]
  - DEPRESSION [None]
  - ANXIETY [None]
